FAERS Safety Report 25493730 (Version 1)
Quarter: 2025Q2

REPORT INFORMATION
  Report Type: Report from Study
  Country: US (occurrence: US)
  Receive Date: 20250630
  Receipt Date: 20250630
  Transmission Date: 20250716
  Serious: Yes (Other)
  Sender: ABBVIE
  Company Number: US-ABBVIE-6343893

PATIENT
  Sex: Female

DRUGS (3)
  1. RINVOQ [Suspect]
     Active Substance: UPADACITINIB
     Indication: Product used for unknown indication
     Route: 048
  2. RINVOQ [Suspect]
     Active Substance: UPADACITINIB
     Indication: Product used for unknown indication
     Route: 048
  3. ENTYVIO [Concomitant]
     Active Substance: VEDOLIZUMAB
     Indication: Product used for unknown indication

REACTIONS (5)
  - Hip arthroplasty [Recovering/Resolving]
  - Unevaluable event [Recovering/Resolving]
  - Injury [Recovering/Resolving]
  - Stress [Recovering/Resolving]
  - Neoplasm malignant [Recovering/Resolving]

NARRATIVE: CASE EVENT DATE: 20210101
